FAERS Safety Report 21304224 (Version 1)
Quarter: 2022Q3

REPORT INFORMATION
  Report Type: Spontaneous
  Country: US (occurrence: US)
  Receive Date: 20220907
  Receipt Date: 20220907
  Transmission Date: 20221026
  Serious: Yes (Other)
  Sender: FDA-Public Use
  Company Number: US-AMERICAN REGENT INC-2022002549

PATIENT
  Sex: Female

DRUGS (1)
  1. FERRIC CARBOXYMALTOSE [Suspect]
     Active Substance: FERRIC CARBOXYMALTOSE
     Indication: Product used for unknown indication
     Dosage: UNK, SINGLE
     Route: 042
     Dates: start: 20220628, end: 20220628

REACTIONS (4)
  - Tremor [Unknown]
  - Fatigue [Unknown]
  - Hypotension [Unknown]
  - Headache [Unknown]

NARRATIVE: CASE EVENT DATE: 20220629
